FAERS Safety Report 14674983 (Version 13)
Quarter: 2019Q1

REPORT INFORMATION
  Report Type: Spontaneous
  Country: PL (occurrence: PL)
  Receive Date: 20180323
  Receipt Date: 20190308
  Transmission Date: 20190417
  Serious: Yes (Other)
  Sender: FDA-Public Use
  Company Number: PL-AUROBINDO-AUR-APL-2018-011429

PATIENT

DRUGS (18)
  1. FLUOXETINE [Suspect]
     Active Substance: FLUOXETINE HYDROCHLORIDE
     Indication: PAIN
  2. FLUOXETINE [Suspect]
     Active Substance: FLUOXETINE HYDROCHLORIDE
     Indication: FIBROMYALGIA
     Dosage: 40 MILLIGRAM
     Route: 065
     Dates: start: 20171103, end: 20171122
  3. TRAZODONE HYDROCHLORIDE. [Concomitant]
     Active Substance: TRAZODONE HYDROCHLORIDE
     Dosage: 75 MILLIGRAM, ONCE A DAY, 75 MG, QD THREE HOURS BEFORE PLANNED BEDTIME
     Route: 065
  4. ZOLPIDEM [Suspect]
     Active Substance: ZOLPIDEM\ZOLPIDEM TARTRATE
     Indication: SLEEP DISORDER
     Dosage: 10 MILLIGRAM, ONCE A DAY
     Route: 048
     Dates: start: 20171122, end: 20171124
  5. ZOFENIL [Concomitant]
     Active Substance: ZOFENOPRIL
     Indication: PRODUCT USED FOR UNKNOWN INDICATION
     Dosage: UNK
     Route: 065
  6. DIAZEPAM. [Suspect]
     Active Substance: DIAZEPAM
     Indication: NIGHTMARE
     Dosage: 10 MILLIGRAM
     Route: 065
  7. MIANSERIN [Suspect]
     Active Substance: MIANSERIN
     Indication: INSOMNIA
     Dosage: 20 MILLIGRAM, ONCE A DAY
     Route: 065
  8. SIMVASTATIN. [Concomitant]
     Active Substance: SIMVASTATIN
     Indication: PRODUCT USED FOR UNKNOWN INDICATION
     Dosage: UNK
     Route: 065
  9. DULOXETINE HYDROCHLORIDE. [Concomitant]
     Active Substance: DULOXETINE HYDROCHLORIDE
     Indication: PAIN MANAGEMENT
     Dosage: 30 MILLIGRAM, 30 MG INTHE MORNING
     Route: 065
  10. TRAZODONE HYDROCHLORIDE. [Concomitant]
     Active Substance: TRAZODONE HYDROCHLORIDE
     Indication: PRODUCT USED FOR UNKNOWN INDICATION
     Dosage: 100 MILLIGRAM, 75 MG, QD THREE HOURS BEFORE PLANNED BEDTIME
     Route: 065
  11. FLUOXETINE [Suspect]
     Active Substance: FLUOXETINE HYDROCHLORIDE
     Indication: DIABETES MELLITUS
  12. DIAZEPAM. [Suspect]
     Active Substance: DIAZEPAM
     Indication: INITIAL INSOMNIA
  13. ZOLPIDEM [Suspect]
     Active Substance: ZOLPIDEM\ZOLPIDEM TARTRATE
     Indication: FIBROMYALGIA
  14. ZOLPIDEM [Suspect]
     Active Substance: ZOLPIDEM\ZOLPIDEM TARTRATE
     Indication: DIABETES MELLITUS
  15. DULOXETINE HYDROCHLORIDE. [Concomitant]
     Active Substance: DULOXETINE HYDROCHLORIDE
     Dosage: 120 MILLIGRAM
     Route: 065
  16. BISOCARD [Concomitant]
     Active Substance: BISOPROLOL
     Indication: PRODUCT USED FOR UNKNOWN INDICATION
  17. PARACETAMOL [Concomitant]
     Active Substance: ACETAMINOPHEN
     Indication: PRODUCT USED FOR UNKNOWN INDICATION
  18. METFORMIN [Concomitant]
     Active Substance: METFORMIN HYDROCHLORIDE
     Indication: BLOOD GLUCOSE FLUCTUATION

REACTIONS (11)
  - Dry mouth [Recovering/Resolving]
  - Initial insomnia [Recovered/Resolved]
  - Drug interaction [Unknown]
  - Abnormal dreams [Recovered/Resolved]
  - Sleep disorder [Recovered/Resolved]
  - Poor quality sleep [Recovered/Resolved]
  - Blood glucose fluctuation [Recovered/Resolved]
  - Nightmare [Recovered/Resolved]
  - Off label use [Recovered/Resolved]
  - Somnolence [Recovering/Resolving]
  - Product prescribing error [Unknown]
